FAERS Safety Report 4988347-1 (Version None)
Quarter: 2006Q2

REPORT INFORMATION
  Report Type: 
  Country: None (occurrence: None)
  Receive Date: 20060502
  Receipt Date: 20060426
  Transmission Date: 20061013
  Serious: Yes (Other)
  Sender: FDA-Public Use
  Company Number: DE-AVENTIS-200611240DE

PATIENT
  Age: 33 Year
  Sex: Male
  Weight: 103 kg

DRUGS (4)
  1. ARAVA [Suspect]
     Indication: PSORIATIC ARTHROPATHY
     Route: 048
     Dates: start: 20050314, end: 20050316
  2. ARAVA [Suspect]
     Route: 048
     Dates: start: 20050317, end: 20050727
  3. METHOTREXATE [Concomitant]
  4. PIROXICAM [Concomitant]
     Dates: start: 20050205

REACTIONS (3)
  - ALANINE AMINOTRANSFERASE INCREASED [None]
  - ASPARTATE AMINOTRANSFERASE INCREASED [None]
  - GAMMA-GLUTAMYLTRANSFERASE INCREASED [None]
